FAERS Safety Report 18079393 (Version 1)
Quarter: 2020Q3

REPORT INFORMATION
  Report Type: Spontaneous
  Country: US (occurrence: US)
  Receive Date: 20200727
  Receipt Date: 20200727
  Transmission Date: 20201103
  Serious: Yes (Other)
  Sender: FDA-Public Use
  Company Number: None

PATIENT
  Age: 63 Year
  Sex: Female
  Weight: 59.4 kg

DRUGS (10)
  1. TIZANIDINE 4 MG BID [Concomitant]
  2. PRAVASTATIN 20 MG QHS [Concomitant]
  3. HYDROXYZPAM 75 MG QD [Concomitant]
  4. LEVOTHYROXINE 88MG QD [Concomitant]
  5. ELMIRON [Suspect]
     Active Substance: PENTOSAN POLYSULFATE SODIUM
     Indication: CYSTITIS INTERSTITIAL
     Route: 048
     Dates: start: 20100220, end: 20200323
  6. DEXILANT 60 MG BID [Concomitant]
  7. KLONOPIN 2 MG QHS [Concomitant]
  8. TRAZADONE 200 MG QHS [Concomitant]
  9. WELLBUTRIN 450MG QAM [Concomitant]
  10. ABILIFY 25 MG QD [Concomitant]

REACTIONS (2)
  - Macular degeneration [None]
  - Maculopathy [None]

NARRATIVE: CASE EVENT DATE: 20200323
